FAERS Safety Report 9514910 (Version 1)
Quarter: 2013Q3

REPORT INFORMATION
  Report Type: Spontaneous
  Country: US (occurrence: None)
  Receive Date: 20130909
  Receipt Date: 20130909
  Transmission Date: 20140515
  Serious: Yes (Hospitalization)
  Sender: FDA-Public Use
  Company Number: 2013P1018735

PATIENT
  Age: 27 Year
  Sex: Male
  Weight: 56.7 kg

DRUGS (3)
  1. ACTIMMUNE [Suspect]
     Indication: CHRONIC GRANULOMATOUS DISEASE
     Route: 058
     Dates: start: 1987, end: 1998
  2. SEPTRA [Concomitant]
  3. PREDNISONE [Concomitant]

REACTIONS (1)
  - White blood cell count increased [None]
